FAERS Safety Report 16852009 (Version 3)
Quarter: 2021Q3

REPORT INFORMATION
  Report Type: Spontaneous
  Country: US (occurrence: US)
  Receive Date: 20190925
  Receipt Date: 20210715
  Transmission Date: 20211014
  Serious: Yes (Other)
  Sender: FDA-Public Use
  Company Number: US-PFIZER INC-2019413867

PATIENT
  Age: 64 Year
  Sex: Male
  Weight: 104 kg

DRUGS (5)
  1. LYRICA [Suspect]
     Active Substance: PREGABALIN
     Indication: INTERVERTEBRAL DISC DISORDER
  2. LYRICA [Suspect]
     Active Substance: PREGABALIN
     Indication: SCIATICA
     Dosage: 200 MG FOUR TIMES A DAY
     Route: 048
     Dates: end: 20190830
  3. LYRICA [Suspect]
     Active Substance: PREGABALIN
     Indication: NEUROPATHY PERIPHERAL
     Dosage: 200 MG THREE TIMES A DAY
     Route: 048
     Dates: start: 20190830
  4. LYRICA [Suspect]
     Active Substance: PREGABALIN
     Indication: BACK PAIN
  5. LYRICA [Suspect]
     Active Substance: PREGABALIN
     Indication: BACK DISORDER

REACTIONS (6)
  - Nerve compression [Unknown]
  - Intervertebral disc disorder [Unknown]
  - Speech disorder [Unknown]
  - Umbilical hernia [Unknown]
  - Dry mouth [Unknown]
  - Prescribed overdose [Unknown]
